FAERS Safety Report 22528526 (Version 1)
Quarter: 2023Q2

REPORT INFORMATION
  Report Type: Report from Study
  Country: BR (occurrence: None)
  Receive Date: 20230607
  Receipt Date: 20230607
  Transmission Date: 20230722
  Serious: Yes (Hospitalization, Other)
  Sender: FDA-Public Use
  Company Number: BR-Merck Healthcare KGaA-9356327

PATIENT
  Age: 19 Year
  Sex: Female

DRUGS (1)
  1. INTERFERON BETA-1A [Suspect]
     Active Substance: INTERFERON BETA-1A
     Indication: Multiple sclerosis
     Route: 058
     Dates: start: 20210714

REACTIONS (7)
  - Epistaxis [Recovering/Resolving]
  - Premature labour [Recovered/Resolved]
  - Seizure [Recovered/Resolved]
  - Anxiety [Recovering/Resolving]
  - Twin pregnancy [Unknown]
  - Live birth [Recovered/Resolved]
  - Maternal exposure during pregnancy [Not Recovered/Not Resolved]

NARRATIVE: CASE EVENT DATE: 20220801
